FAERS Safety Report 9885209 (Version 1)
Quarter: 2014Q1

REPORT INFORMATION
  Report Type: Spontaneous
  Country: US (occurrence: US)
  Receive Date: 20140210
  Receipt Date: 20140210
  Transmission Date: 20141002
  Serious: No
  Sender: FDA-Public Use
  Company Number: US-PFIZER INC-2014035035

PATIENT
  Age: 47 Year
  Sex: Female
  Weight: 54 kg

DRUGS (1)
  1. SERTRALINE HCL [Suspect]
     Indication: ANXIETY
     Dosage: 50 MG, 1X/DAY
     Route: 048
     Dates: start: 201311

REACTIONS (8)
  - Hypervitaminosis [Unknown]
  - Menstruation irregular [Unknown]
  - Oligomenorrhoea [Unknown]
  - Visual acuity reduced [Unknown]
  - Headache [Unknown]
  - Dizziness [Unknown]
  - Flatulence [Unknown]
  - Abdominal distension [Unknown]
